FAERS Safety Report 4546126-3 (Version None)
Quarter: 2005Q1

REPORT INFORMATION
  Report Type: 
  Country: None (occurrence: None)
  Receive Date: 20050106
  Receipt Date: 20041229
  Transmission Date: 20050727
  Serious: Yes (Other)
  Sender: FDA-Public Use
  Company Number: US-JNJFOC-20040901175

PATIENT
  Sex: Female

DRUGS (1)
  1. RISPERDAL [Suspect]
     Dosage: 0.5 MG - 1 MG
     Route: 049

REACTIONS (2)
  - RETINAL VASCULITIS [None]
  - RETINITIS PIGMENTOSA [None]
